FAERS Safety Report 9923488 (Version 3)
Quarter: 2021Q1

REPORT INFORMATION
  Report Type: Report from Study
  Country: US (occurrence: US)
  Receive Date: 20140225
  Receipt Date: 20210210
  Transmission Date: 20210420
  Serious: Yes (Other)
  Sender: FDA-Public Use
  Company Number: US-AMGEN-USASP2013081984

PATIENT
  Age: 46 Year
  Sex: Female

DRUGS (2)
  1. ENBREL [Suspect]
     Active Substance: ETANERCEPT
     Indication: RHEUMATOID ARTHRITIS
     Dosage: 50 MG, QWK
     Route: 058
     Dates: start: 20081209
  2. ENBREL [Suspect]
     Active Substance: ETANERCEPT
     Dosage: 50 MG, QWK
     Route: 058

REACTIONS (7)
  - Bronchitis [Not Recovered/Not Resolved]
  - Staphylococcal infection [Unknown]
  - Menorrhagia [Unknown]
  - Contusion [Unknown]
  - Nervousness [Unknown]
  - Pain [Unknown]
  - Anaemia [Unknown]

NARRATIVE: CASE EVENT DATE: 2010
